FAERS Safety Report 6155121-2 (Version None)
Quarter: 2009Q2

REPORT INFORMATION
  Report Type: 
  Country: None (occurrence: None)
  Receive Date: 20090414
  Receipt Date: 20080128
  Transmission Date: 20091009
  Serious: Yes (Death, Hospitalization)
  Sender: FDA-Public Use
  Company Number: US-ASTRAZENECA-2006UW23669

PATIENT
  Age: 17251 Day
  Sex: Male
  Weight: 99.8 kg

DRUGS (32)
  1. SEROQUEL [Suspect]
     Indication: BIPOLAR DISORDER
     Route: 048
     Dates: start: 20020101, end: 20030101
  2. SEROQUEL [Suspect]
     Indication: DEPRESSION
     Route: 048
     Dates: start: 20020101, end: 20030101
  3. SEROQUEL [Suspect]
     Indication: ANXIETY
     Route: 048
     Dates: start: 20020101, end: 20030101
  4. SEROQUEL [Suspect]
     Dosage: 25 MG TO 100MG
     Route: 048
     Dates: start: 20010910
  5. SEROQUEL [Suspect]
     Dosage: 25 MG TO 100MG
     Route: 048
     Dates: start: 20010910
  6. SEROQUEL [Suspect]
     Dosage: 25 MG TO 100MG
     Route: 048
     Dates: start: 20010910
  7. TRAZODONE HCL [Concomitant]
  8. PRAZSOIN HCL [Concomitant]
  9. HYDROXYZINE PAMOATE [Concomitant]
  10. CARBAMAZEPINE [Concomitant]
  11. VARDENAFIL [Concomitant]
  12. SILDENAFIL CITRATE [Concomitant]
  13. OMEPRAZOLE [Concomitant]
  14. LOVASTATIN [Concomitant]
  15. LISINOPRIL [Concomitant]
  16. LABETALOL HCL [Concomitant]
  17. GLYBURIDE [Concomitant]
  18. FELODIPINE [Concomitant]
  19. CLONIDINE [Concomitant]
  20. ZIPRASIDONE HCL [Concomitant]
  21. BUPROPION HCL [Concomitant]
  22. HYDROCHLOROTHIAZIDE [Concomitant]
  23. INSULIN ASPART [Concomitant]
  24. ASPIRIN [Concomitant]
  25. GUAIFENESN [Concomitant]
  26. PSEUDOEPHEDRINE HCL [Concomitant]
  27. FUROSEMIDE [Concomitant]
  28. RISPERIDONE [Concomitant]
  29. RABEPRAZOLE SODIUM [Concomitant]
  30. VERAPAMIL [Concomitant]
  31. RANITIDINE [Concomitant]
  32. ACETAMINOPHEN [Concomitant]

REACTIONS (14)
  - ALCOHOLISM [None]
  - ANAEMIA [None]
  - ARTHRALGIA [None]
  - BIPOLAR DISORDER [None]
  - DEATH [None]
  - DIABETES MELLITUS [None]
  - DRUG ABUSE [None]
  - DRUG DEPENDENCE [None]
  - HYPERTENSION [None]
  - NECK PAIN [None]
  - NICOTINE DEPENDENCE [None]
  - PEPTIC ULCER [None]
  - SCHIZOAFFECTIVE DISORDER [None]
  - TACHYCARDIA [None]
